FAERS Safety Report 8954096 (Version 1)
Quarter: 2012Q4

REPORT INFORMATION
  Report Type: Report from Study
  Country: US (occurrence: US)
  Receive Date: 20121207
  Receipt Date: 20121207
  Transmission Date: 20130627
  Serious: Yes (Other)
  Sender: FDA-Public Use
  Company Number: US-ABBOTT-12P-163-1014694-00

PATIENT
  Age: 70 None
  Sex: Female

DRUGS (1)
  1. HUMIRA [Suspect]
     Indication: RHEUMATOID ARTHRITIS
     Route: 058
     Dates: start: 201111

REACTIONS (9)
  - Arthropathy [Unknown]
  - Oedema peripheral [Unknown]
  - Pain in extremity [Unknown]
  - Joint swelling [Unknown]
  - Arthralgia [Recovering/Resolving]
  - Meniscus injury [Unknown]
  - Joint effusion [Unknown]
  - Drug effect decreased [Unknown]
  - Fall [Unknown]
